FAERS Safety Report 17039388 (Version 2)
Quarter: 2020Q1

REPORT INFORMATION
  Report Type: Spontaneous
  Country: US (occurrence: US)
  Receive Date: 20191115
  Receipt Date: 20200211
  Transmission Date: 20200409
  Serious: No
  Sender: FDA-Public Use
  Company Number: US-SA-2019SA315330

PATIENT
  Age: 75 Year
  Sex: Female

DRUGS (1)
  1. LANTUS SOLOSTAR [Suspect]
     Active Substance: INSULIN GLARGINE
     Indication: TYPE 2 DIABETES MELLITUS
     Dosage: DOSE IS 23 UNITS AT NIGHT AND 34 UNITS IN DAY
     Route: 065

REACTIONS (4)
  - Inappropriate schedule of product administration [Unknown]
  - Hypoacusis [Unknown]
  - Visual impairment [Unknown]
  - Wrong technique in device usage process [Unknown]
